FAERS Safety Report 5571141-0 (Version None)
Quarter: 2007Q4

REPORT INFORMATION
  Report Type: 
  Country: None (occurrence: None)
  Receive Date: 20071221
  Receipt Date: 20061113
  Transmission Date: 20080405
  Serious: No
  Sender: FDA-Public Use
  Company Number: A0627281A

PATIENT
  Age: 51 Year
  Sex: Female

DRUGS (3)
  1. FLUTICASONE PROPIONATE [Suspect]
     Dosage: 2PUFF PER DAY
     Route: 045
     Dates: start: 20060915
  2. UNKNOWN MEDICATION [Concomitant]
  3. NEXIUM [Concomitant]

REACTIONS (1)
  - DRUG INEFFECTIVE [None]
